FAERS Safety Report 9636772 (Version 5)
Quarter: 2014Q1

REPORT INFORMATION
  Report Type: Spontaneous
  Country: JP (occurrence: JP)
  Receive Date: 20131022
  Receipt Date: 20140119
  Transmission Date: 20141002
  Serious: Yes (Hospitalization)
  Sender: FDA-Public Use
  Company Number: JP-ROCHE-1291923

PATIENT
  Age: 72 Year
  Sex: Male
  Weight: 60 kg

DRUGS (10)
  1. ACTIVACIN [Suspect]
     Indication: EMBOLIC STROKE
     Route: 042
     Dates: start: 20130528, end: 20130528
  2. BAYASPIRIN [Concomitant]
     Route: 065
     Dates: start: 20081215
  3. PILSICAINIDE HYDROCHLORIDE [Concomitant]
     Route: 048
  4. AMLODIPINE BESILATE/CANDESARTAN CILEXETIL [Concomitant]
     Route: 065
     Dates: start: 20110221
  5. MAINTATE [Concomitant]
     Route: 065
     Dates: start: 20081215
  6. PRAVASTATIN NATRIUM [Concomitant]
     Route: 065
     Dates: start: 20081215
  7. SUNRYTHM [Concomitant]
     Route: 065
     Dates: start: 20130527, end: 20130527
  8. AMLODIPINE BESILATE/CANDESARTAN CILEXETIL [Concomitant]
     Route: 065
     Dates: start: 20110221
  9. MUCOSTA [Concomitant]
     Route: 065
  10. CIBENOL [Concomitant]
     Route: 065
     Dates: start: 20130527, end: 20130527

REACTIONS (2)
  - Acute coronary syndrome [Recovered/Resolved]
  - Cerebral infarction [Recovered/Resolved]
